FAERS Safety Report 9456626 (Version 1)
Quarter: 2013Q3

REPORT INFORMATION
  Report Type: Report from Study
  Country: US (occurrence: US)
  Receive Date: 20130813
  Receipt Date: 20130813
  Transmission Date: 20140515
  Serious: Yes (Hospitalization)
  Sender: FDA-Public Use
  Company Number: US-US-EMD SERONO, INC.-7228937

PATIENT
  Age: 53 Year
  Sex: Female

DRUGS (1)
  1. REBIF [Suspect]
     Indication: PRODUCT USED FOR UNKNOWN INDICATION
     Route: 058
     Dates: start: 20130524

REACTIONS (5)
  - Pulmonary mass [Unknown]
  - Renal cyst [Unknown]
  - Blood triglycerides increased [Unknown]
  - Hepatic enzyme increased [Unknown]
  - Injection site erythema [Not Recovered/Not Resolved]
